FAERS Safety Report 12644899 (Version 1)
Quarter: 2016Q3

REPORT INFORMATION
  Report Type: Spontaneous
  Country: US (occurrence: US)
  Receive Date: 20160811
  Receipt Date: 20160811
  Transmission Date: 20161109
  Serious: No
  Sender: FDA-Public Use
  Company Number: ALCN2014US000649

PATIENT
  Age: 79 Year
  Sex: Male
  Weight: 112.2 kg

DRUGS (1)
  1. ICAPS LZ [Suspect]
     Active Substance: VITAMINS
     Indication: MACULAR DEGENERATION
     Dosage: 2 DF, QD
     Dates: start: 20140110

REACTIONS (2)
  - Joint swelling [Recovered/Resolved]
  - Weight increased [Recovered/Resolved]
